FAERS Safety Report 16578159 (Version 2)
Quarter: 2019Q3

REPORT INFORMATION
  Report Type: Spontaneous
  Country: US (occurrence: US)
  Receive Date: 20190716
  Receipt Date: 20190924
  Transmission Date: 20191004
  Serious: Yes (Hospitalization)
  Sender: FDA-Public Use
  Company Number: US-PFIZER INC-2019298443

PATIENT
  Age: 71 Year
  Sex: Male

DRUGS (2)
  1. INLYTA [Suspect]
     Active Substance: AXITINIB
     Dosage: 80 MG, UNK
  2. INLYTA [Suspect]
     Active Substance: AXITINIB
     Dosage: 20 MG, UNK

REACTIONS (1)
  - Dehydration [Unknown]
